FAERS Safety Report 14275884 (Version 9)
Quarter: 2019Q4

REPORT INFORMATION
  Report Type: Report from Study
  Country: BR (occurrence: BR)
  Receive Date: 20171212
  Receipt Date: 20191122
  Transmission Date: 20200122
  Serious: Yes (Life-Threatening, Hospitalization, Other)
  Sender: FDA-Public Use
  Company Number: BR-ROCHE-1843153

PATIENT
  Age: 64 Year
  Sex: Female
  Weight: 81.7 kg

DRUGS (28)
  1. XOLAIR [Suspect]
     Active Substance: OMALIZUMAB
     Dosage: 375 MG, BIW
     Route: 058
     Dates: start: 20160204
  2. XOLAIR [Suspect]
     Active Substance: OMALIZUMAB
     Route: 058
     Dates: start: 201812
  3. XOLAIR [Suspect]
     Active Substance: OMALIZUMAB
     Route: 058
     Dates: start: 20190225
  4. OMEPRAZOLE. [Concomitant]
     Active Substance: OMEPRAZOLE
     Indication: GASTRIC DISORDER
     Dosage: (STARTED 10 YEARS AGO)
     Route: 048
  5. XOLAIR [Suspect]
     Active Substance: OMALIZUMAB
     Route: 058
     Dates: start: 201608
  6. XOLAIR [Suspect]
     Active Substance: OMALIZUMAB
     Route: 058
     Dates: start: 201706
  7. SERETIDE [Concomitant]
     Active Substance: FLUTICASONE PROPIONATE\SALMETEROL XINAFOATE
     Indication: ASTHMA
     Dosage: (STARTED 10 YEARS AGO)
     Route: 055
  8. XOLAIR [Suspect]
     Active Substance: OMALIZUMAB
     Route: 058
     Dates: start: 20161220
  9. XOLAIR [Suspect]
     Active Substance: OMALIZUMAB
     Route: 030
     Dates: start: 20190311
  10. LOSARTAN. [Concomitant]
     Active Substance: LOSARTAN
     Indication: HYPERTENSION
     Dosage: (FOR 6 MONTHS)
     Route: 065
  11. AMLODIPINE [Concomitant]
     Active Substance: AMLODIPINE BESYLATE
     Indication: HYPERTENSION
     Dosage: (STARTED 5 YEARS)
     Route: 048
  12. SPIRONOLACTONE. [Concomitant]
     Active Substance: SPIRONOLACTONE
     Indication: DIURETIC THERAPY
     Dosage: (STARTED 1 YEAR AND A HALF)
     Route: 048
  13. XOLAIR [Suspect]
     Active Substance: OMALIZUMAB
     Route: 058
     Dates: start: 201609
  14. AMITRIPTYLIN [Concomitant]
     Active Substance: AMITRIPTYLINE
     Indication: HYPERTENSION
     Dosage: (FOR SOME YEARS)
     Route: 065
  15. LEVOTHYROXINE. [Concomitant]
     Active Substance: LEVOTHYROXINE
     Indication: THYROID DISORDER
     Dosage: (STARTED 10 YEARS AGO)
     Route: 048
  16. MONTELAIR [Concomitant]
     Active Substance: MONTELUKAST SODIUM
     Indication: ASTHMA
     Dosage: (SINCE 5 YEARS)
     Route: 065
     Dates: start: 2014
  17. SERETIDE [Concomitant]
     Active Substance: FLUTICASONE PROPIONATE\SALMETEROL XINAFOATE
     Route: 065
  18. SALBUTAMOL [Concomitant]
     Active Substance: ALBUTEROL
     Indication: ASTHMA
     Dosage: (STARTED 10 YEARS AGO)
     Route: 055
  19. XOLAIR [Suspect]
     Active Substance: OMALIZUMAB
     Indication: ASTHMA
     Dosage: 375 MG
     Route: 058
     Dates: start: 20140204
  20. XOLAIR [Suspect]
     Active Substance: OMALIZUMAB
     Route: 058
     Dates: start: 201811
  21. OMEPRAZOLE. [Concomitant]
     Active Substance: OMEPRAZOLE
     Indication: PROPHYLAXIS
     Dosage: (5 YEARS AGO)
     Route: 065
  22. XOLAIR [Suspect]
     Active Substance: OMALIZUMAB
     Route: 058
     Dates: start: 20160930
  23. AMITRIPTYLIN [Concomitant]
     Active Substance: AMITRIPTYLINE
     Indication: BLOOD PRESSURE ABNORMAL
  24. ATORVASTATIN [Concomitant]
     Active Substance: ATORVASTATIN
     Indication: BLOOD CHOLESTEROL INCREASED
     Dosage: (STARTED 6 MONTHS AGO)
     Route: 048
  25. XOLAIR [Suspect]
     Active Substance: OMALIZUMAB
     Route: 058
     Dates: start: 201607
  26. XOLAIR [Suspect]
     Active Substance: OMALIZUMAB
     Route: 058
     Dates: start: 20190123
  27. OMEPRAZOL [OMEPRAZOLE] [Concomitant]
     Active Substance: OMEPRAZOLE
     Indication: PROPHYLAXIS
     Dosage: 2 DF, QD (5 YEARS AGO)
     Route: 065
  28. HYDROCHLOROTHIAZIDE. [Concomitant]
     Active Substance: HYDROCHLOROTHIAZIDE
     Indication: DIURETIC THERAPY
     Dosage: (STARTED 1 YEAR AND A HALF)
     Route: 048

REACTIONS (68)
  - Peripheral swelling [Recovered/Resolved]
  - Blister [Recovered/Resolved]
  - Sensory loss [Unknown]
  - Thrombosis [Unknown]
  - Stress [Unknown]
  - Injection site pain [Recovered/Resolved]
  - Incorrect route of product administration [Unknown]
  - Incorrect dose administered [Unknown]
  - Back pain [Unknown]
  - Abdominal distension [Recovered/Resolved]
  - Depression [Recovered/Resolved]
  - Fall [Unknown]
  - Muscle spasms [Not Recovered/Not Resolved]
  - Feeling abnormal [Unknown]
  - Exostosis [Unknown]
  - Swelling [Recovered/Resolved]
  - Speech disorder [Unknown]
  - Cough [Not Recovered/Not Resolved]
  - Nervous system disorder [Not Recovered/Not Resolved]
  - Headache [Recovering/Resolving]
  - Head discomfort [Recovered/Resolved]
  - Spinal disorder [Not Recovered/Not Resolved]
  - Fatigue [Recovering/Resolving]
  - Rheumatic disorder [Unknown]
  - Movement disorder [Not Recovered/Not Resolved]
  - Insomnia [Unknown]
  - Venous occlusion [Unknown]
  - Asthmatic crisis [Recovered/Resolved]
  - Deafness [Not Recovered/Not Resolved]
  - Influenza [Unknown]
  - Malaise [Recovered/Resolved]
  - Nervousness [Recovered/Resolved]
  - Visual impairment [Recovering/Resolving]
  - Erythema [Unknown]
  - Loss of consciousness [Unknown]
  - Concomitant disease aggravated [Unknown]
  - Dizziness [Recovering/Resolving]
  - Atrioventricular block [Unknown]
  - Myocardial infarction [Recovered/Resolved]
  - Pneumonia [Recovered/Resolved]
  - Pneumonia [Recovered/Resolved]
  - Wheezing [Not Recovered/Not Resolved]
  - Hypersensitivity [Recovered/Resolved]
  - Inappropriate schedule of product administration [Unknown]
  - Near drowning [Unknown]
  - Decreased appetite [Recovered/Resolved]
  - Suffocation feeling [Unknown]
  - Myocardial infarction [Unknown]
  - Dyspnoea [Not Recovered/Not Resolved]
  - Splenomegaly [Unknown]
  - Weight decreased [Unknown]
  - Blood pressure abnormal [Unknown]
  - Pain in extremity [Not Recovered/Not Resolved]
  - Spinal osteoarthritis [Unknown]
  - Excessive cerumen production [Not Recovered/Not Resolved]
  - Chest pain [Recovered/Resolved]
  - Throat irritation [Unknown]
  - Dyspnoea [Recovered/Resolved]
  - Spinal pain [Recovered/Resolved]
  - Peripheral swelling [Not Recovered/Not Resolved]
  - Weight increased [Unknown]
  - Tremor [Recovered/Resolved]
  - Asthma [Unknown]
  - Pharyngitis [Unknown]
  - Discomfort [Not Recovered/Not Resolved]
  - Pain [Not Recovered/Not Resolved]
  - Weight fluctuation [Not Recovered/Not Resolved]
  - Hyperhidrosis [Unknown]

NARRATIVE: CASE EVENT DATE: 20140826
